FAERS Safety Report 7582839-7 (Version None)
Quarter: 2011Q2

REPORT INFORMATION
  Report Type: 
  Country: None (occurrence: None)
  Receive Date: 20110527
  Receipt Date: 20101014
  Transmission Date: 20111010
  Serious: Yes (Other)
  Sender: FDA-Public Use
  Company Number: US201010004546

PATIENT
  Age: 43 Year
  Sex: Female

DRUGS (18)
  1. ASPIRIN [Concomitant]
  2. BYETTA [Suspect]
     Indication: PRODUCT USED FOR UNKNOWN INDICATION
     Dosage: 10 UG, 2/D, SUBCUTANEOUS
     Route: 058
     Dates: start: 20091001, end: 20100901
  3. LANZOPRAZOL (LANSOPRAZOLE) [Concomitant]
  4. ESGIC (BUTALBITAL, CAFFEINE, PARACETAMOL) [Concomitant]
  5. TRILIPIX [Concomitant]
  6. LOVAZA [Concomitant]
  7. PHENERGAN HCL [Concomitant]
  8. DYAZIDE (HYDROCHLOROTHIAZIDE, TRIAMTERENE) 12)HYDROOODONE(HYDROCODONE) [Concomitant]
  9. LOMOTIL [Concomitant]
  10. ASACOL [Concomitant]
  11. TIZANIDINE HCL [Concomitant]
  12. PREMARIN [Concomitant]
  13. LASIX [Concomitant]
  14. GLIMEPIRIDE [Concomitant]
  15. ELAVIL [Concomitant]
  16. GABAPENTIN [Suspect]
  17. ALPRAZOLAM [Concomitant]
  18. LOTREL [Concomitant]

REACTIONS (1)
  - PANCREATITIS NECROTISING [None]
